FAERS Safety Report 25407660 (Version 4)
Quarter: 2025Q3

REPORT INFORMATION
  Report Type: Spontaneous
  Country: CA (occurrence: CA)
  Receive Date: 20250606
  Receipt Date: 20250708
  Transmission Date: 20251020
  Serious: Yes (Other)
  Sender: PFIZER
  Company Number: CA-PFIZER INC-202500109285

PATIENT
  Age: 66 Year
  Sex: Female

DRUGS (13)
  1. RUXIENCE [Suspect]
     Active Substance: RITUXIMAB-PVVR
     Indication: Granulomatosis with polyangiitis
     Route: 042
     Dates: end: 202209
  2. RUXIENCE [Suspect]
     Active Substance: RITUXIMAB-PVVR
     Route: 042
     Dates: start: 20230418, end: 20231120
  3. RUXIENCE [Suspect]
     Active Substance: RITUXIMAB-PVVR
     Route: 042
     Dates: start: 20240517, end: 20240517
  4. RUXIENCE [Suspect]
     Active Substance: RITUXIMAB-PVVR
     Route: 042
     Dates: start: 20241120, end: 20241120
  5. ALENDRONATE [Concomitant]
     Active Substance: ALENDRONATE SODIUM
  6. FARXIGA [Concomitant]
     Active Substance: DAPAGLIFLOZIN PROPANEDIOL
  7. IRBESARTAN [Concomitant]
     Active Substance: IRBESARTAN
  8. PANTOPRAZOLE [Concomitant]
     Active Substance: PANTOPRAZOLE
  9. PNEUMOCOCCAL VACCINE NOS [Concomitant]
     Active Substance: PNEUMOCOCCAL VACCINE
     Indication: Immunisation
     Dates: start: 202505, end: 202505
  10. PNEUMOCOCCAL VACCINE NOS [Concomitant]
     Active Substance: PNEUMOCOCCAL VACCINE
     Dates: start: 202505, end: 202505
  11. PREDNISONE [Concomitant]
     Active Substance: PREDNISONE
  12. ROSUVASTATIN [Concomitant]
     Active Substance: ROSUVASTATIN
  13. SULFATRIM [Concomitant]
     Active Substance: SULFAMETHOXAZOLE\TRIMETHOPRIM

REACTIONS (3)
  - Pulmonary congestion [Recovering/Resolving]
  - Nasopharyngitis [Recovering/Resolving]
  - Productive cough [Recovering/Resolving]

NARRATIVE: CASE EVENT DATE: 20250101
